FAERS Safety Report 6690338-X (Version None)
Quarter: 2010Q2

REPORT INFORMATION
  Report Type: 
  Country: None (occurrence: None)
  Receive Date: 20100413
  Receipt Date: 20100111
  Transmission Date: 20101027
  Serious: Yes (Death)
  Sender: FDA-Public Use
  Company Number: 004597

PATIENT
  Age: 21 Year
  Sex: Male

DRUGS (5)
  1. METHYLPHENIDATE [Suspect]
  2. ESCITALOPRAM [Suspect]
  3. ACETAMINOPHEN [Suspect]
  4. IBUPROFEN [Suspect]
  5. ETHANOL [Suspect]

REACTIONS (1)
  - COMPLETED SUICIDE [None]
